FAERS Safety Report 12124487 (Version 1)
Quarter: 2016Q1

REPORT INFORMATION
  Report Type: Spontaneous
  Country: US (occurrence: None)
  Receive Date: 20160226
  Receipt Date: 20160226
  Transmission Date: 20160526
  Serious: Yes (Other)
  Sender: FDA-Public Use
  Company Number: None

PATIENT
  Age: 34 Year
  Sex: Male
  Weight: 85.73 kg

DRUGS (6)
  1. PHENTERMINE. [Concomitant]
     Active Substance: PHENTERMINE
  2. SUBOXONE [Suspect]
     Active Substance: BUPRENORPHINE HYDROCHLORIDE\NALOXONE HYDROCHLORIDE
     Indication: DRUG DEPENDENCE
     Dosage: 1 FILM, ONCE DAILY, TAKEN UNDER THE TONGUE
     Dates: start: 20140228, end: 20160225
  3. CHROMIUM PICOLLINATE [Concomitant]
  4. SUBOXONE [Concomitant]
     Active Substance: BUPRENORPHINE HYDROCHLORIDE\NALOXONE HYDROCHLORIDE
  5. POTASSIUM [Concomitant]
     Active Substance: POTASSIUM
  6. WATER PILL [Concomitant]
     Active Substance: UNSPECIFIED INGREDIENT

REACTIONS (1)
  - Libido decreased [None]

NARRATIVE: CASE EVENT DATE: 20160201
